FAERS Safety Report 7138275-0 (Version None)
Quarter: 2010Q4

REPORT INFORMATION
  Report Type: 
  Country: None (occurrence: None)
  Receive Date: 20101118
  Receipt Date: 20101109
  Transmission Date: 20110411
  Serious: Yes (Other)
  Sender: FDA-Public Use
  Company Number: CTI_01243_2010

PATIENT
  Age: 46 Year
  Sex: Female
  Weight: 115.6 kg

DRUGS (17)
  1. ZILEUTON 600 MG [Suspect]
     Indication: ASTHMA
     Dosage: (1200 MG BID ORAL)
     Route: 048
  2. SAVELLA [Suspect]
     Indication: FIBROMYALGIA
     Dosage: (12.5 MG QD ORAL), (12.5 MG BID ORAL), (25 MG BID ORAL), (50 MG BID ORAL), (200 MG BID ORAL)
     Route: 048
     Dates: start: 20100601, end: 20100601
  3. SAVELLA [Suspect]
     Indication: FIBROMYALGIA
     Dosage: (12.5 MG QD ORAL), (12.5 MG BID ORAL), (25 MG BID ORAL), (50 MG BID ORAL), (200 MG BID ORAL)
     Route: 048
     Dates: start: 20100701, end: 20100801
  4. SAVELLA [Suspect]
     Indication: FIBROMYALGIA
     Dosage: (12.5 MG QD ORAL), (12.5 MG BID ORAL), (25 MG BID ORAL), (50 MG BID ORAL), (200 MG BID ORAL)
     Route: 048
     Dates: start: 20100801, end: 20100914
  5. THEOPHYLLINE [Suspect]
     Indication: ASTHMA
     Dosage: (200 MG QD ORAL)
     Route: 048
  6. MAXAIR [Suspect]
     Indication: ASTHMA
     Dosage: (1 DF BID)
  7. ADVAIR HFA [Suspect]
     Indication: ASTHMA
     Dosage: (2 DF BID)
  8. PULMICORT [Suspect]
     Indication: ASTHMA
     Dosage: (180 ?G BID)
  9. XYZAL [Concomitant]
  10. RELPAX [Concomitant]
  11. RHINOCORT [Concomitant]
  12. NEXIUM [Concomitant]
  13. TOPAMAX [Concomitant]
  14. B12-VITAMIN [Concomitant]
  15. PERCOCET [Concomitant]
  16. MULTI-VITAMINS [Concomitant]
  17. CALCIUM + VITAMIN D [Concomitant]

REACTIONS (4)
  - BLOOD PRESSURE INCREASED [None]
  - CATARACT [None]
  - OVERDOSE [None]
  - SINUSITIS [None]
